FAERS Safety Report 7979098-X (Version None)
Quarter: 2011Q4

REPORT INFORMATION
  Report Type: 
  Country: None (occurrence: None)
  Receive Date: 20111214
  Receipt Date: 20111212
  Transmission Date: 20120403
  Serious: No
  Sender: FDA-Public Use
  Company Number: US-PFIZER INC-2011302213

PATIENT
  Sex: Male
  Weight: 43.084 kg

DRUGS (1)
  1. JUNIOR STRENGTH ADVIL [Suspect]
     Indication: PYREXIA
     Dosage: UNK
     Dates: start: 20110101, end: 20111201

REACTIONS (1)
  - ORAL DISCOMFORT [None]
